FAERS Safety Report 5449162-8 (Version None)
Quarter: 2007Q3

REPORT INFORMATION
  Report Type: 
  Country: None (occurrence: None)
  Receive Date: 20070911
  Receipt Date: 20070904
  Transmission Date: 20080115
  Serious: Yes (Hospitalization)
  Sender: FDA-Public Use
  Company Number: US-BOEHRINGER INGELHEIM PHARMACEUTICALS, INC.-2007-BP-20504BP

PATIENT
  Age: 51 Year
  Sex: Male
  Weight: 51 kg

DRUGS (1)
  1. APTIVUS/RITONAVIR CAPSULES [Suspect]
     Indication: HIV INFECTION
     Dosage: TPV/RTV 1000/400 MG
     Route: 048
     Dates: start: 20060401, end: 20070624

REACTIONS (6)
  - ASTHENIA [None]
  - CEREBRAL HAEMORRHAGE [None]
  - CONFUSIONAL STATE [None]
  - FACIAL PALSY [None]
  - FALL [None]
  - SPEECH DISORDER [None]
